FAERS Safety Report 5458978-3 (Version None)
Quarter: 2007Q3

REPORT INFORMATION
  Report Type: 
  Country: None (occurrence: None)
  Receive Date: 20070919
  Receipt Date: 20070914
  Transmission Date: 20080115
  Serious: Yes (Hospitalization)
  Sender: FDA-Public Use
  Company Number: US-ASTRAZENECA-2002UW11155

PATIENT
  Age: 67 Year
  Sex: Female
  Weight: 59 kg

DRUGS (4)
  1. NEXIUM [Suspect]
     Indication: GASTROOESOPHAGEAL REFLUX DISEASE
     Route: 048
  2. NEXIUM [Suspect]
     Route: 048
     Dates: start: 20021113
  3. NEXIUM [Suspect]
     Route: 048
  4. NEXIUM [Suspect]
     Route: 048
     Dates: start: 20060901

REACTIONS (20)
  - ABDOMINAL DISCOMFORT [None]
  - ABDOMINAL PAIN [None]
  - BLEPHARITIS [None]
  - BURNING SENSATION [None]
  - CHEST DISCOMFORT [None]
  - COLITIS [None]
  - DRUG INEFFECTIVE [None]
  - DRY EYE [None]
  - DYSPEPSIA [None]
  - DYSPHAGIA [None]
  - DYSPNOEA [None]
  - HEADACHE [None]
  - HYPERHIDROSIS [None]
  - ILEITIS [None]
  - INSOMNIA [None]
  - MOUTH HAEMORRHAGE [None]
  - MUSCLE SPASMS [None]
  - MUSCULOSKELETAL PAIN [None]
  - VISION BLURRED [None]
  - WEIGHT DECREASED [None]
